FAERS Safety Report 9132308 (Version 1)
Quarter: 2013Q1

REPORT INFORMATION
  Report Type: Spontaneous
  Country: US (occurrence: US)
  Receive Date: 20130301
  Receipt Date: 20130301
  Transmission Date: 20140127
  Serious: No
  Sender: FDA-Public Use
  Company Number: US-PFIZER INC-2013071365

PATIENT
  Age: 57 Year
  Sex: Female
  Weight: 54.42 kg

DRUGS (3)
  1. ESTRING [Suspect]
     Indication: VULVOVAGINAL DISCOMFORT
     Dosage: UNK
     Route: 067
     Dates: start: 20120915, end: 20130215
  2. ESTRING [Suspect]
     Indication: VULVOVAGINAL DRYNESS
  3. ADVIL [Concomitant]
     Dosage: 200 MG, 1X/DAY

REACTIONS (3)
  - Vaginal disorder [Recovering/Resolving]
  - Hot flush [Recovering/Resolving]
  - Anxiety [Recovering/Resolving]
